FAERS Safety Report 8836281 (Version 2)
Quarter: 2015Q3

REPORT INFORMATION
  Report Type: Report from Study
  Country: US (occurrence: US)
  Receive Date: 20121011
  Receipt Date: 20150810
  Transmission Date: 20151125
  Serious: Yes (Other)
  Sender: FDA-Public Use
  Company Number: US-ROCHE-1136495

PATIENT
  Sex: Male
  Weight: 95.1 kg

DRUGS (5)
  1. ALBUTEROL. [Concomitant]
     Active Substance: ALBUTEROL
  2. SYNTHROID [Concomitant]
     Active Substance: LEVOTHYROXINE SODIUM
  3. NUTROPIN AQ [Suspect]
     Active Substance: SOMATROPIN
     Indication: GROWTH HORMONE DEFICIENCY
     Route: 058
     Dates: start: 20000128
  4. NUTROPIN AQ [Suspect]
     Active Substance: SOMATROPIN
     Dosage: 0.02 MG/KG/DAY, 5MG/ML-2 ML SIZE
     Route: 058
     Dates: start: 20010312
  5. NUTROPIN AQ [Suspect]
     Active Substance: SOMATROPIN
     Route: 058

REACTIONS (4)
  - Sluggishness [Unknown]
  - Myalgia [Unknown]
  - Fatigue [Unknown]
  - Haematuria [Unknown]
